FAERS Safety Report 19074113 (Version 1)
Quarter: 2021Q1

REPORT INFORMATION
  Report Type: Spontaneous
  Country: US (occurrence: US)
  Receive Date: 20210330
  Receipt Date: 20210330
  Transmission Date: 20210420
  Serious: Yes (Hospitalization)
  Sender: FDA-Public Use
  Company Number: US-JNJFOC-20210349126

PATIENT
  Age: 59 Year
  Sex: Female
  Weight: 59.1 kg

DRUGS (3)
  1. OPSUMIT [Suspect]
     Active Substance: MACITENTAN
     Indication: PULMONARY ARTERIAL HYPERTENSION
     Dosage: 10MG ORALLY DAILY
     Route: 048
  2. REMODULIN [Concomitant]
     Active Substance: TREPROSTINIL
     Indication: PRODUCT USED FOR UNKNOWN INDICATION
     Route: 065
  3. JANSSEN COVID?19 VACCINE [Suspect]
     Active Substance: AD26.COV2.S
     Indication: IMMUNISATION
     Route: 065
     Dates: start: 202103, end: 202103

REACTIONS (2)
  - Vomiting [Unknown]
  - Nausea [Unknown]

NARRATIVE: CASE EVENT DATE: 202103
